FAERS Safety Report 4808314-8 (Version None)
Quarter: 2005Q4

REPORT INFORMATION
  Report Type: 
  Country: None (occurrence: None)
  Receive Date: 20051021
  Receipt Date: 20040305
  Transmission Date: 20060501
  Serious: Yes (Hospitalization)
  Sender: FDA-Public Use
  Company Number: DE_040313148

PATIENT
  Age: 36 Year
  Sex: Female

DRUGS (6)
  1. ZYPREXA [Suspect]
     Indication: SCHIZOPHRENIA, PARANOID TYPE
     Dosage: 25 MG/1 DAY
     Dates: start: 20040105, end: 20040129
  2. ZELDOX(ZIPRASIDONE HYDROCHLORIDE) [Concomitant]
  3. LORAZEPAM [Concomitant]
  4. FLUANXOL (FLUPENTIXOL DIHYDROCHLORIDE) [Concomitant]
  5. FLUANOXOL (FLUPENTIXOL DIHYDROCHLORIDE) [Concomitant]
  6. AKINETONE RETARD (BIPERIDEN HYDROCHLORIDE) [Concomitant]

REACTIONS (4)
  - CONDITION AGGRAVATED [None]
  - NEUTROPENIA [None]
  - SCHIZOPHRENIA [None]
  - WHITE BLOOD CELL COUNT DECREASED [None]
